FAERS Safety Report 20032233 (Version 3)
Quarter: 2022Q1

REPORT INFORMATION
  Report Type: Report from Study
  Country: US (occurrence: US)
  Receive Date: 20211103
  Receipt Date: 20220124
  Transmission Date: 20220424
  Serious: Yes (Other)
  Sender: FDA-Public Use
  Company Number: US-TAKEDA-2021TUS053417

PATIENT
  Sex: Female

DRUGS (18)
  1. TEDUGLUTIDE [Suspect]
     Active Substance: TEDUGLUTIDE
     Indication: Short-bowel syndrome
     Dosage: 3.75 MILLILITER, QD
     Route: 058
     Dates: start: 20210629
  2. TEDUGLUTIDE [Suspect]
     Active Substance: TEDUGLUTIDE
     Indication: Short-bowel syndrome
     Dosage: 3.75 MILLILITER, QD
     Route: 058
     Dates: start: 20210629
  3. TEDUGLUTIDE [Suspect]
     Active Substance: TEDUGLUTIDE
     Indication: Short-bowel syndrome
     Dosage: 3.75 MILLILITER, QD
     Route: 058
     Dates: start: 20210629
  4. TEDUGLUTIDE [Suspect]
     Active Substance: TEDUGLUTIDE
     Indication: Short-bowel syndrome
     Dosage: 3.75 MILLILITER, QD
     Route: 058
     Dates: start: 20210629
  5. TEDUGLUTIDE [Suspect]
     Active Substance: TEDUGLUTIDE
     Dosage: 0.375 MILLILITER, QD
     Route: 058
     Dates: start: 20210630
  6. TEDUGLUTIDE [Suspect]
     Active Substance: TEDUGLUTIDE
     Dosage: 0.375 MILLILITER, QD
     Route: 058
     Dates: start: 20210630
  7. TEDUGLUTIDE [Suspect]
     Active Substance: TEDUGLUTIDE
     Dosage: 0.375 MILLILITER, QD
     Route: 058
     Dates: start: 20210630
  8. TEDUGLUTIDE [Suspect]
     Active Substance: TEDUGLUTIDE
     Dosage: 0.375 MILLILITER, QD
     Route: 058
     Dates: start: 20210630
  9. TEDUGLUTIDE [Suspect]
     Active Substance: TEDUGLUTIDE
     Dosage: 3.75 MILLIGRAM, QD
     Route: 058
     Dates: start: 202106
  10. TEDUGLUTIDE [Suspect]
     Active Substance: TEDUGLUTIDE
     Dosage: 3.75 MILLIGRAM, QD
     Route: 058
     Dates: start: 202106
  11. TEDUGLUTIDE [Suspect]
     Active Substance: TEDUGLUTIDE
     Dosage: 3.75 MILLIGRAM, QD
     Route: 058
     Dates: start: 202106
  12. TEDUGLUTIDE [Suspect]
     Active Substance: TEDUGLUTIDE
     Dosage: 3.75 MILLIGRAM, QD
     Route: 058
     Dates: start: 202106
  13. TEDUGLUTIDE [Suspect]
     Active Substance: TEDUGLUTIDE
     Dosage: 2.95 MILLIGRAM, QD
     Route: 058
     Dates: start: 202106
  14. TEDUGLUTIDE [Suspect]
     Active Substance: TEDUGLUTIDE
     Dosage: 2.95 MILLIGRAM, QD
     Route: 058
     Dates: start: 202106
  15. TEDUGLUTIDE [Suspect]
     Active Substance: TEDUGLUTIDE
     Dosage: 2.95 MILLIGRAM, QD
     Route: 058
     Dates: start: 202106
  16. TEDUGLUTIDE [Suspect]
     Active Substance: TEDUGLUTIDE
     Dosage: 2.95 MILLIGRAM, QD
     Route: 058
     Dates: start: 202106
  17. METOCLOPRAMIDE [Concomitant]
     Active Substance: METOCLOPRAMIDE
     Route: 065
  18. CALCIUM CHLORIDE\POTASSIUM CHLORIDE\SODIUM ACETATE\SODIUM CHLORIDE [Concomitant]
     Active Substance: CALCIUM CHLORIDE\POTASSIUM CHLORIDE\SODIUM ACETATE\SODIUM CHLORIDE
     Dosage: UNK UNK, 2/WEEK
     Route: 065

REACTIONS (11)
  - Nephrolithiasis [Unknown]
  - Pancreatitis [Unknown]
  - Scar [Unknown]
  - Weight fluctuation [Unknown]
  - Vitamin D decreased [Unknown]
  - Peripheral swelling [Recovered/Resolved]
  - Pruritus [Unknown]
  - Abdominal distension [Unknown]
  - Headache [Recovered/Resolved]
  - Nausea [Unknown]
  - Weight decreased [Unknown]
